FAERS Safety Report 12184786 (Version 2)
Quarter: 2016Q1

REPORT INFORMATION
  Report Type: Spontaneous
  Country: US (occurrence: US)
  Receive Date: 20160316
  Receipt Date: 20160318
  Transmission Date: 20160526
  Serious: Yes (Other)
  Sender: FDA-Public Use
  Company Number: US-MEDTRONIC-1049187

PATIENT
  Age: 56 Year
  Sex: Female

DRUGS (1)
  1. COMPOUNDED BACLOFEN [Suspect]
     Active Substance: BACLOFEN
     Indication: MUSCLE SPASTICITY
     Route: 037

REACTIONS (7)
  - Screaming [Recovered/Resolved]
  - Tooth disorder [None]
  - Paraesthesia oral [Recovered/Resolved]
  - Emotional distress [Recovered/Resolved]
  - Lip disorder [None]
  - Adverse drug reaction [Recovered/Resolved]
  - Medical device site pain [Recovered/Resolved]
